FAERS Safety Report 7533411-6 (Version None)
Quarter: 2011Q2

REPORT INFORMATION
  Report Type: 
  Country: None (occurrence: None)
  Receive Date: 20110608
  Receipt Date: 20051107
  Transmission Date: 20111010
  Serious: Yes (Death, Other)
  Sender: FDA-Public Use
  Company Number: PHFR2005IE03653

PATIENT
  Sex: Female

DRUGS (1)
  1. CLOZAPINE [Suspect]
     Indication: SCHIZOPHRENIA
     Route: 048
     Dates: start: 20000322

REACTIONS (4)
  - LOWER RESPIRATORY TRACT INFECTION [None]
  - DEATH [None]
  - ASTHMA [None]
  - OVERWEIGHT [None]
